FAERS Safety Report 13565526 (Version 4)
Quarter: 2017Q4

REPORT INFORMATION
  Report Type: Spontaneous
  Country: US (occurrence: US)
  Receive Date: 20170519
  Receipt Date: 20171130
  Transmission Date: 20180320
  Serious: No
  Sender: FDA-Public Use
  Company Number: US-ACTELION-A-NJ2017-154102

PATIENT
  Age: 62 Year
  Sex: Female
  Weight: 102.49 kg

DRUGS (3)
  1. ADCIRCA [Concomitant]
     Active Substance: TADALAFIL
  2. TRACLEER [Suspect]
     Active Substance: BOSENTAN
     Indication: PULMONARY ARTERIAL HYPERTENSION
     Dosage: 125 MG, BID
     Route: 048
  3. VENTAVIS [Suspect]
     Active Substance: ILOPROST
     Indication: PULMONARY ARTERIAL HYPERTENSION
     Dosage: 5 MCG,  6 TO 9 TIMES PER DAY
     Route: 055

REACTIONS (8)
  - Dyspnoea exertional [Unknown]
  - Vulvovaginal pruritus [Unknown]
  - Blood glucose fluctuation [Not Recovered/Not Resolved]
  - Diabetes mellitus [Unknown]
  - Chest discomfort [Unknown]
  - Nasal congestion [Unknown]
  - Paranasal sinus discomfort [Unknown]
  - Oedema [Unknown]
